FAERS Safety Report 8652427 (Version 3)
Quarter: 2013Q4

REPORT INFORMATION
  Report Type: Spontaneous
  Country: US (occurrence: US)
  Receive Date: 20120706
  Receipt Date: 20131205
  Transmission Date: 20140711
  Serious: Yes (Other)
  Sender: FDA-Public Use
  Company Number: US-PFIZER INC-2012161369

PATIENT
  Age: 58 Year
  Sex: Female

DRUGS (2)
  1. CHANTIX [Suspect]
     Dosage: UNK
     Dates: start: 20070101, end: 20081203
  2. CHANTIX [Suspect]
     Dosage: 0.5 MG STARTER PACK AND 1 MG CONTINUING PACK
     Dates: start: 20090608

REACTIONS (4)
  - Suicidal ideation [Unknown]
  - Anxiety [Unknown]
  - Aggression [Unknown]
  - Mental disorder [Unknown]
